FAERS Safety Report 7996157-6 (Version None)
Quarter: 2011Q4

REPORT INFORMATION
  Report Type: 
  Country: None (occurrence: None)
  Receive Date: 20111220
  Receipt Date: 20111215
  Transmission Date: 20120403
  Serious: Yes (Life-Threatening, Hospitalization, Other)
  Sender: FDA-Public Use
  Company Number: PHHY2011AU95146

PATIENT
  Sex: Female
  Weight: 65 kg

DRUGS (1)
  1. GLEEVEC [Suspect]
     Indication: CHRONIC MYELOID LEUKAEMIA
     Dosage: 400 MG, UNK
     Dates: start: 20110505, end: 20110920

REACTIONS (15)
  - EPIGASTRIC DISCOMFORT [None]
  - CONJUNCTIVAL HAEMORRHAGE [None]
  - ACUTE HEPATIC FAILURE [None]
  - NAUSEA [None]
  - HEPATIC NECROSIS [None]
  - MENTAL STATUS CHANGES [None]
  - VOMITING [None]
  - ABDOMINAL PAIN [None]
  - JAUNDICE [None]
  - FATIGUE [None]
  - DECREASED APPETITE [None]
  - DRUG INTERACTION [None]
  - LIVER FUNCTION TEST ABNORMAL [None]
  - ASTERIXIS [None]
  - PRURITUS [None]
